FAERS Safety Report 7051849-0 (Version None)
Quarter: 2010Q4

REPORT INFORMATION
  Report Type: 
  Country: None (occurrence: None)
  Receive Date: 20101013
  Receipt Date: 20101005
  Transmission Date: 20110411
  Serious: Yes (Other)
  Sender: FDA-Public Use
  Company Number: 019827

PATIENT
  Age: 50 Year
  Sex: Male

DRUGS (1)
  1. KEPPRA [Suspect]
     Dosage: 250 MG THERAPY AT A REGIME OF 1-0-2
     Dates: start: 20100501

REACTIONS (1)
  - WHITE BLOOD CELL COUNT ABNORMAL [None]
